FAERS Safety Report 20997010 (Version 1)
Quarter: 2022Q2

REPORT INFORMATION
  Report Type: Spontaneous
  Country: US (occurrence: US)
  Receive Date: 20220623
  Receipt Date: 20220623
  Transmission Date: 20220721
  Serious: No
  Sender: FDA-Public Use
  Company Number: US-ORGANON-O2206USA001678

PATIENT
  Age: 62 Year
  Sex: Male

DRUGS (5)
  1. REMERON [Suspect]
     Active Substance: MIRTAZAPINE
     Indication: Insomnia
     Dosage: 15 MG ORALLY AT BEDTIME
     Route: 048
  2. REMERON [Suspect]
     Active Substance: MIRTAZAPINE
     Indication: Delirium
  3. REMERON [Suspect]
     Active Substance: MIRTAZAPINE
     Indication: Nausea
  4. NICOTINE [Concomitant]
     Active Substance: NICOTINE
     Dosage: 100 PIECES OF NICOTINE GUM (200?400 MG)
     Route: 048
  5. LORAZEPAM [Concomitant]
     Active Substance: LORAZEPAM
     Dosage: 2 MILLIGRAM
     Route: 030

REACTIONS (1)
  - Product use in unapproved indication [Unknown]
